FAERS Safety Report 10144041 (Version 1)
Quarter: 2014Q2

REPORT INFORMATION
  Report Type: Spontaneous
  Country: CN (occurrence: CN)
  Receive Date: 20140430
  Receipt Date: 20140430
  Transmission Date: 20141212
  Serious: Yes (Other)
  Sender: FDA-Public Use
  Company Number: CN-ABBVIE-14K-035-1231641-00

PATIENT
  Age: 5 Year
  Sex: Male

DRUGS (2)
  1. DEPAKINE [Suspect]
     Indication: EPILEPSY
     Route: 048
     Dates: start: 201007
  2. CARBAMAZEPINE [Concomitant]
     Indication: PRODUCT USED FOR UNKNOWN INDICATION
     Dates: start: 201401

REACTIONS (6)
  - Trismus [Recovered/Resolved]
  - Foaming at mouth [Recovered/Resolved]
  - Screaming [Recovered/Resolved]
  - Tongue biting [Unknown]
  - Epilepsy [Recovered/Resolved]
  - Drug ineffective [Unknown]
